FAERS Safety Report 4827508-9 (Version None)
Quarter: 2005Q4

REPORT INFORMATION
  Report Type: 
  Country: None (occurrence: None)
  Receive Date: 20051114
  Receipt Date: 20051018
  Transmission Date: 20060501
  Serious: Yes (Death)
  Sender: FDA-Public Use
  Company Number: KR-BRISTOL-MYERS SQUIBB COMPANY-13152327

PATIENT
  Age: 39 Year
  Sex: Male

DRUGS (6)
  1. ABILIFY [Suspect]
     Indication: SCHIZOPHRENIA
     Route: 048
     Dates: start: 20050624
  2. AMISULPRIDE [Concomitant]
     Indication: SCHIZOPHRENIA
     Route: 048
     Dates: start: 20040730, end: 20050929
  3. VITAMIN B COMPLEX CAP [Concomitant]
     Route: 048
     Dates: start: 20050708, end: 20051012
  4. DIAZEPAM [Concomitant]
     Indication: PREMEDICATION
     Route: 048
     Dates: start: 20050930, end: 20051011
  5. HALOPERIDOL [Concomitant]
     Indication: SCHIZOPHRENIA
     Route: 048
     Dates: start: 20040531, end: 20040729
  6. CHLORPROMAZINE [Concomitant]
     Route: 048
     Dates: start: 20040815, end: 20050218

REACTIONS (1)
  - MYOCARDIAL ISCHAEMIA [None]
